FAERS Safety Report 18668274 (Version 1)
Quarter: 2020Q4

REPORT INFORMATION
  Report Type: Report from Study
  Country: US (occurrence: US)
  Receive Date: 20201228
  Receipt Date: 20201228
  Transmission Date: 20210114
  Serious: Yes (Hospitalization, Other)
  Sender: FDA-Public Use
  Company Number: US-ASTELLAS-2020US034686

PATIENT
  Age: 77 Year
  Sex: Female

DRUGS (1)
  1. ASP2215 [Suspect]
     Active Substance: GILTERITINIB
     Indication: ACUTE MYELOID LEUKAEMIA
     Route: 048
     Dates: start: 20200904

REACTIONS (7)
  - Fatigue [Recovering/Resolving]
  - Platelet count decreased [Unknown]
  - Dry skin [Unknown]
  - Oral pain [Unknown]
  - Coronavirus infection [Recovering/Resolving]
  - Underdose [Unknown]
  - Heart rate abnormal [Recovered/Resolved]

NARRATIVE: CASE EVENT DATE: 20200904
